FAERS Safety Report 4635724-4 (Version None)
Quarter: 2005Q2

REPORT INFORMATION
  Report Type: 
  Country: None (occurrence: None)
  Receive Date: 20050413
  Receipt Date: 20050331
  Transmission Date: 20051028
  Serious: Yes (Hospitalization, Other)
  Sender: FDA-Public Use
  Company Number: HQWYE116417SEP04

PATIENT
  Age: 30 Year
  Sex: Male
  Weight: 70.9 kg

DRUGS (11)
  1. RAPAMUNE [Suspect]
     Indication: PROPHYLAXIS AGAINST TRANSPLANT REJECTION
     Dosage: SEE IMAGE
     Route: 048
     Dates: start: 20030701, end: 20031021
  2. RAPAMUNE [Suspect]
     Indication: PROPHYLAXIS AGAINST TRANSPLANT REJECTION
     Dosage: SEE IMAGE
     Route: 048
     Dates: start: 20031022, end: 20031031
  3. RAPAMUNE [Suspect]
     Indication: PROPHYLAXIS AGAINST TRANSPLANT REJECTION
     Dosage: SEE IMAGE
     Route: 048
     Dates: start: 20031101
  4. LABETALOL HCL [Concomitant]
  5. HYDRALAZINE HCL [Concomitant]
  6. PROGRAF [Concomitant]
  7. PREDNISONE [Concomitant]
  8. MYCELEX [Concomitant]
  9. CYTOVENE [Concomitant]
  10. BACTRIM [Concomitant]
  11. NYSTATIN [Concomitant]

REACTIONS (6)
  - DEHYDRATION [None]
  - DISEASE PROGRESSION [None]
  - HYPERTENSIVE EMERGENCY [None]
  - HYPOPERFUSION [None]
  - RENAL FAILURE ACUTE [None]
  - WHITE BLOOD CELL COUNT DECREASED [None]
